FAERS Safety Report 5690190-5 (Version None)
Quarter: 2008Q2

REPORT INFORMATION
  Report Type: 
  Country: None (occurrence: None)
  Receive Date: 20080401
  Receipt Date: 20080307
  Transmission Date: 20081010
  Serious: Yes (Death, Other)
  Sender: FDA-Public Use
  Company Number: US-BAYER-200815331GPV

PATIENT

DRUGS (5)
  1. FLUDARABINE [Suspect]
     Indication: ACUTE MYELOID LEUKAEMIA
     Route: 042
  2. CYTARABINE [Suspect]
     Indication: ACUTE MYELOID LEUKAEMIA
     Route: 042
  3. IDARUBICIN HCL [Suspect]
     Indication: ACUTE MYELOID LEUKAEMIA
     Route: 042
  4. GEMTUZUMAB [Suspect]
     Indication: ACUTE MYELOID LEUKAEMIA
     Route: 042
  5. NEUPOGEN [Suspect]
     Indication: ACUTE MYELOID LEUKAEMIA
     Route: 042

REACTIONS (3)
  - APLASIA [None]
  - HEPATOTOXICITY [None]
  - VENOOCCLUSIVE DISEASE [None]
